FAERS Safety Report 22079032 (Version 2)
Quarter: 2023Q1

REPORT INFORMATION
  Report Type: Other
  Country: BR (occurrence: None)
  Receive Date: 20230309
  Receipt Date: 20230317
  Transmission Date: 20230417
  Serious: Yes (Hospitalization)
  Sender: FDA-Public Use
  Company Number: BR-ROCHE-3300300

PATIENT
  Age: 53 Year
  Sex: Male
  Weight: 86 kg

DRUGS (3)
  1. OCREVUS [Suspect]
     Active Substance: OCRELIZUMAB
     Indication: Primary progressive multiple sclerosis
     Route: 042
     Dates: start: 202209
  2. LOSARTAN [Concomitant]
     Active Substance: LOSARTAN
     Indication: Hypertension
  3. DUAL [Concomitant]
     Indication: Multiple sclerosis

REACTIONS (8)
  - Sepsis [Recovered/Resolved]
  - Urinary tract infection [Unknown]
  - Fluid retention [Unknown]
  - Mobility decreased [Unknown]
  - Immunodeficiency [Unknown]
  - Visual impairment [Unknown]
  - Asthenia [Unknown]
  - Gait inability [Unknown]

NARRATIVE: CASE EVENT DATE: 20230127
